FAERS Safety Report 7755102-9 (Version None)
Quarter: 2011Q3

REPORT INFORMATION
  Report Type: 
  Country: None (occurrence: None)
  Receive Date: 20110916
  Receipt Date: 20110909
  Transmission Date: 20111222
  Serious: No
  Sender: FDA-Public Use
  Company Number: US-PFIZER INC-2011213740

PATIENT
  Sex: Female

DRUGS (2)
  1. DIFLUCAN [Suspect]
     Dosage: UNK
  2. ESTRACE [Suspect]
     Dosage: 2 MG, UNK

REACTIONS (1)
  - VAGINAL MUCOSAL BLISTERING [None]
